FAERS Safety Report 23988534 (Version 3)
Quarter: 2025Q1

REPORT INFORMATION
  Report Type: Spontaneous
  Country: US (occurrence: US)
  Receive Date: 20240619
  Receipt Date: 20250211
  Transmission Date: 20250409
  Serious: No
  Sender: CALLIDITAS THERAPEUTICS AB
  Company Number: US-Calliditas-2024CAL01034

PATIENT
  Age: 31 Year
  Sex: Male
  Weight: 103 kg

DRUGS (6)
  1. TARPEYO [Suspect]
     Active Substance: BUDESONIDE
     Indication: Haematuria
     Route: 048
     Dates: start: 202403
  2. AVAPRO [Concomitant]
     Active Substance: IRBESARTAN
  3. ALLOPURINOL [Concomitant]
     Active Substance: ALLOPURINOL
  4. VITAMIN D3 [Concomitant]
     Active Substance: CHOLECALCIFEROL
  5. VITAMIN B12 [Concomitant]
     Active Substance: CYANOCOBALAMIN
  6. ELIQUIS [Concomitant]
     Active Substance: APIXABAN

REACTIONS (6)
  - Weight increased [Unknown]
  - Muscle spasms [Unknown]
  - Insomnia [Not Recovered/Not Resolved]
  - Weight loss poor [Not Recovered/Not Resolved]
  - Acne [Not Recovered/Not Resolved]
  - Initial insomnia [Unknown]
